FAERS Safety Report 4300754-9 (Version None)
Quarter: 2004Q1

REPORT INFORMATION
  Report Type: 
  Country: None (occurrence: None)
  Receive Date: 20040220
  Receipt Date: 20040220
  Transmission Date: 20041129
  Serious: Yes (Death)
  Sender: FDA-Public Use
  Company Number: None

PATIENT
  Age: 90 Year
  Sex: Female
  Weight: 45.3597 kg

DRUGS (7)
  1. FOSAMAX [Suspect]
     Dosage: 70 MG PO Q WEEK
     Route: 048
     Dates: start: 20020327, end: 20020715
  2. VIOXX [Suspect]
     Indication: OSTEOARTHRITIS
     Dosage: 25 MG PO Q DAY
     Route: 048
     Dates: start: 20020327, end: 20020715
  3. VIOXX [Suspect]
     Indication: POLYMYALGIA RHEUMATICA
     Dosage: 25 MG PO Q DAY
     Route: 048
     Dates: start: 20020327, end: 20020715
  4. PREDNISONE [Concomitant]
  5. ATENOLOL [Concomitant]
  6. LEVOXYL [Concomitant]
  7. DIAZEPAM [Concomitant]

REACTIONS (6)
  - ABDOMINAL ADHESIONS [None]
  - ABDOMINAL PAIN [None]
  - MUCOSAL ULCERATION [None]
  - OCCULT BLOOD POSITIVE [None]
  - SEPSIS [None]
  - SMALL INTESTINAL PERFORATION [None]
